FAERS Safety Report 23367077 (Version 1)
Quarter: 2024Q1

REPORT INFORMATION
  Report Type: Spontaneous
  Country: US (occurrence: None)
  Receive Date: 20240104
  Receipt Date: 20240104
  Transmission Date: 20240410
  Serious: No
  Sender: FDA-Public Use
  Company Number: None

PATIENT
  Sex: Female

DRUGS (1)
  1. INFLIXIMAB [Suspect]
     Active Substance: INFLIXIMAB
     Indication: Inflammatory bowel disease
     Dosage: OTHER QUANTITY : 10MG/KG;?OTHER FREQUENCY : Q 8WKS;?
     Route: 042
     Dates: start: 202309

REACTIONS (4)
  - Drug ineffective [None]
  - Headache [None]
  - Arthralgia [None]
  - Condition aggravated [None]
